FAERS Safety Report 15869501 (Version 1)
Quarter: 2019Q1

REPORT INFORMATION
  Report Type: Spontaneous
  Country: IT (occurrence: IT)
  Receive Date: 20190125
  Receipt Date: 20190125
  Transmission Date: 20190417
  Serious: Yes (Hospitalization, Other)
  Sender: FDA-Public Use
  Company Number: IT-PFM-2019-00132

PATIENT

DRUGS (5)
  1. ZINC. [Suspect]
     Active Substance: ZINC
     Indication: DRUG ABUSE
     Dosage: 600 MG, SINGLE
     Route: 048
     Dates: start: 20180911, end: 20180911
  2. PROPRANOLOL HYDROCHLORIDE. [Suspect]
     Active Substance: PROPRANOLOL HYDROCHLORIDE
     Dosage: 400 MG, SINGLE
     Route: 048
     Dates: start: 20180911, end: 20180911
  3. LITHIUM. [Suspect]
     Active Substance: LITHIUM
     Indication: DRUG ABUSE
     Dosage: 1200 MG, SINGLE
     Route: 048
     Dates: start: 20180911, end: 20180911
  4. LEVOPRAID (LEVOSULPIRIDE) [Suspect]
     Active Substance: LEVOSULPIRIDE
     Indication: DRUG ABUSE
     Dosage: 250 MG, SINGLE
     Route: 048
     Dates: start: 20180911, end: 20180911
  5. PARACETAMOL [Suspect]
     Active Substance: ACETAMINOPHEN
     Indication: DRUG ABUSE
     Dosage: 8000 MG, SINGLE
     Route: 048
     Dates: start: 20180911, end: 20180911

REACTIONS (7)
  - Abdominal pain upper [Unknown]
  - Intentional self-injury [Unknown]
  - Off label use [Unknown]
  - Drug abuse [Unknown]
  - Intentional overdose [Unknown]
  - Toxicity to various agents [Unknown]
  - Product use issue [Unknown]

NARRATIVE: CASE EVENT DATE: 20180911
